FAERS Safety Report 12892193 (Version 1)
Quarter: 2016Q4

REPORT INFORMATION
  Report Type: Report from Study
  Country: US (occurrence: US)
  Receive Date: 20161028
  Receipt Date: 20161028
  Transmission Date: 20170207
  Serious: Yes (Other)
  Sender: FDA-Public Use
  Company Number: US-AUROBINDO-AUR-APL-2014-08871

PATIENT
  Age: 23 Year
  Sex: Female
  Weight: 79.8 kg

DRUGS (26)
  1. AMBISOME [Suspect]
     Active Substance: AMPHOTERICIN B
     Indication: FUNGAL INFECTION
     Dosage: 7.5 MG/KG, ONCE A DAY
     Route: 042
     Dates: start: 20140530
  2. OSCAL D [Concomitant]
     Active Substance: CALCIUM CARBONATE\CHOLECALCIFEROL
     Indication: BLOOD CALCIUM DECREASED
     Dosage: 1.25 G, EVERY 8 HOURS
     Route: 048
     Dates: start: 20140610
  3. POSACONAZOLE [Concomitant]
     Active Substance: POSACONAZOLE
     Indication: PRODUCT USED FOR UNKNOWN INDICATION
     Route: 065
  4. ZANTAC [Concomitant]
     Active Substance: RANITIDINE HYDROCHLORIDE
     Indication: VOMITING
     Dosage: 150 MG, EVERY 12 HOURS
     Route: 048
     Dates: start: 20140604
  5. URSODIOL. [Concomitant]
     Active Substance: URSODIOL
     Indication: PROPHYLAXIS
     Dosage: 300 MG, EVERY 12 HOURS
     Route: 048
     Dates: start: 20140523
  6. ATIVAN [Concomitant]
     Active Substance: LORAZEPAM
     Indication: NAUSEA
     Dosage: 2 MG, EVERY 6 HOURS AS NEEDED
     Route: 042
     Dates: start: 20140703
  7. ISRADIPINE. [Concomitant]
     Active Substance: ISRADIPINE
     Indication: BLOOD PRESSURE INCREASED
     Dosage: 5 MG, EVERY 12 HOURS AS NEEDED
     Route: 048
     Dates: start: 20140705
  8. HYDROCORTISONE SODIUM SUCCINATE [Concomitant]
     Active Substance: HYDROCORTISONE SODIUM SUCCINATE
     Indication: PREMEDICATION
     Dosage: 50 MG, ONCE PRIOR TO ADMINISTRATION OF BLOOD PRODUCT
     Route: 042
     Dates: start: 20140603
  9. INOTUZUMAB OZOGAMICIN [Suspect]
     Active Substance: INOTUZUMAB OZOGAMICIN
     Indication: ACUTE LYMPHOCYTIC LEUKAEMIA
     Dosage: 1.8 MG/M2, DAY 1 (0.8 MG/M2), DAY 8 (0.5 MG/M2), DAY 15 (0.5 MG/M2); IV DRIP
     Route: 041
     Dates: start: 20140625, end: 20140709
  10. ZOFRAN [Concomitant]
     Active Substance: ONDANSETRON HYDROCHLORIDE
     Indication: VOMITING
  11. FENTANYL CITRATE. [Concomitant]
     Active Substance: FENTANYL CITRATE
     Indication: PAIN
     Dosage: 750 ?G, PATIENT CONTROLLED ANESTHESIA
     Dates: start: 20140522
  12. G-CSF [Concomitant]
     Active Substance: GRANULOCYTE COLONY-STIMULATING FACTOR NOS
     Indication: NEUTROPENIA
     Dosage: 15 ?G/ML, ONCE A DAY
     Route: 042
     Dates: start: 20140728
  13. LEVOFLOXACIN 750MG [Suspect]
     Active Substance: LEVOFLOXACIN
     Indication: SINUSITIS
     Dosage: 750 MG, ONCE A DAY
     Route: 042
     Dates: start: 20140529
  14. ZOFRAN [Concomitant]
     Active Substance: ONDANSETRON HYDROCHLORIDE
     Indication: NAUSEA
     Dosage: 8 MG, EVERY 8 DAYS AS NEEDED
     Route: 042
     Dates: start: 20140630
  15. BENADRYL [Concomitant]
     Active Substance: DIPHENHYDRAMINE HYDROCHLORIDE
     Indication: PREMEDICATION
     Dosage: 50 MG, EVERY 6 HOURS
     Route: 042
     Dates: start: 20140511
  16. MOTRIN [Concomitant]
     Active Substance: IBUPROFEN
     Indication: PAIN
     Dosage: 600 MG, EVERY 6 HOURS AS NEEDED
     Route: 048
     Dates: start: 20140702
  17. MOTRIN [Concomitant]
     Active Substance: IBUPROFEN
     Indication: PREMEDICATION
  18. NACL [Concomitant]
     Active Substance: SODIUM CHLORIDE
     Indication: PRODUCT USED FOR UNKNOWN INDICATION
     Dosage: UNK
     Route: 065
     Dates: start: 20140627
  19. CALCIUM [Concomitant]
     Active Substance: CALCIUM
     Indication: PRODUCT USED FOR UNKNOWN INDICATION
     Route: 065
  20. FENTANYL. [Concomitant]
     Active Substance: FENTANYL
     Indication: PAIN
     Dosage: 50 ?G, EVERY HOUR AS NEEDED
     Route: 042
     Dates: start: 20140529
  21. OXYCONTIN [Concomitant]
     Active Substance: OXYCODONE HYDROCHLORIDE
     Indication: PAIN
     Dosage: 80 MG, EVERY 12 HOURS, CONTROLLED RELEASE
     Route: 048
     Dates: start: 20140529
  22. GABAPENTIN 600MG [Suspect]
     Active Substance: GABAPENTIN
     Indication: PAIN
     Dosage: 600 MG, 3 TIMES A DAY
     Route: 048
     Dates: start: 20140511
  23. ATIVAN [Concomitant]
     Active Substance: LORAZEPAM
     Indication: VOMITING
  24. ATIVAN [Concomitant]
     Active Substance: LORAZEPAM
     Indication: ANXIETY
  25. TYLENOL [Concomitant]
     Active Substance: ACETAMINOPHEN
     Indication: PREMEDICATION
     Dosage: 1000 MG, EVERY 6 HOURS
     Route: 042
     Dates: start: 20140706
  26. SARGRAMOSTIM [Concomitant]
     Active Substance: SARGRAMOSTIM
     Indication: FUNGAL INFECTION
     Dosage: 250 ?G/M2, ONCE A DAY
     Route: 042
     Dates: start: 20140603

REACTIONS (11)
  - Blood glucose increased [Not Recovered/Not Resolved]
  - Bilirubin conjugated increased [Not Recovered/Not Resolved]
  - Hypoxia [Not Recovered/Not Resolved]
  - Respiratory distress [Not Recovered/Not Resolved]
  - Blood potassium decreased [Recovered/Resolved]
  - Blood chloride increased [Not Recovered/Not Resolved]
  - Carbon dioxide decreased [Not Recovered/Not Resolved]
  - Blood magnesium decreased [Recovered/Resolved]
  - Fluid imbalance [Recovering/Resolving]
  - Blood creatinine decreased [Not Recovered/Not Resolved]
  - Coagulation factor decreased [Unknown]

NARRATIVE: CASE EVENT DATE: 20140803
